FAERS Safety Report 20404849 (Version 2)
Quarter: 2024Q4

REPORT INFORMATION
  Report Type: Report from Study
  Country: MX (occurrence: MX)
  Receive Date: 20220131
  Receipt Date: 20241204
  Transmission Date: 20250114
  Serious: Yes (Hospitalization, Other)
  Sender: NOVARTIS
  Company Number: MX-NOVARTISPH-NVSC2022MX019264

PATIENT
  Sex: Male
  Weight: 54 kg

DRUGS (3)
  1. EXFORGE [Suspect]
     Active Substance: AMLODIPINE BESYLATE\VALSARTAN
     Indication: Hypertension
     Dosage: 1 DOSAGE FORM, QD
     Route: 048
  2. EXFORGE [Suspect]
     Active Substance: AMLODIPINE BESYLATE\VALSARTAN
     Dosage: 1 DOSAGE FORM, QD
     Route: 048
  3. METFORMIN HYDROCHLORIDE\VILDAGLIPTIN [Suspect]
     Active Substance: METFORMIN HYDROCHLORIDE\VILDAGLIPTIN
     Indication: Diabetes mellitus
     Dosage: 1 DOSAGE FORM, BID (4 OR 5 YEARS AGO)
     Route: 048

REACTIONS (8)
  - Hip fracture [Unknown]
  - Lower limb fracture [Unknown]
  - Gait inability [Not Recovered/Not Resolved]
  - Fall [Recovered/Resolved with Sequelae]
  - Peripheral swelling [Unknown]
  - Memory impairment [Not Recovered/Not Resolved]
  - Fall [Unknown]
  - Fracture [Unknown]

NARRATIVE: CASE EVENT DATE: 20160101
